FAERS Safety Report 17746956 (Version 1)
Quarter: 2020Q2

REPORT INFORMATION
  Report Type: Spontaneous
  Country: US (occurrence: US)
  Receive Date: 20200505
  Receipt Date: 20200505
  Transmission Date: 20200714
  Serious: Yes (Other)
  Sender: FDA-Public Use
  Company Number: US-EMD SERONO-9160712

PATIENT
  Sex: Female
  Weight: 83 kg

DRUGS (1)
  1. GLUCOPHAGE [Suspect]
     Active Substance: METFORMIN HYDROCHLORIDE
     Indication: DIABETES MELLITUS
     Dosage: PILL
     Route: 048

REACTIONS (13)
  - Arthritis [Unknown]
  - Myocardial infarction [Unknown]
  - Product dose omission [Unknown]
  - Back pain [Unknown]
  - Depression [Unknown]
  - Product availability issue [Unknown]
  - Maternal exposure during pregnancy [Unknown]
  - Anxiety [Unknown]
  - Thrombosis [Unknown]
  - Hypertension [Unknown]
  - Diabetes mellitus inadequate control [Unknown]
  - Cardiac disorder [Unknown]
  - Intervertebral disc degeneration [Unknown]
